FAERS Safety Report 5152255-6 (Version None)
Quarter: 2006Q4

REPORT INFORMATION
  Report Type: 
  Country: None (occurrence: None)
  Receive Date: 20061114
  Receipt Date: 20061114
  Transmission Date: 20070319
  Serious: No
  Sender: FDA-Public Use
  Company Number: None

PATIENT
  Sex: Male
  Weight: 113.3993 kg

DRUGS (3)
  1. OXYCODONE HCL [Suspect]
     Indication: BACK PAIN
  2. OXYCODONE HCL [Suspect]
     Indication: PAIN IN EXTREMITY
  3. OXYCONTIN [Suspect]

REACTIONS (7)
  - CONSTIPATION [None]
  - HEADACHE [None]
  - MUSCLE SPASMS [None]
  - PHARMACEUTICAL PRODUCT COMPLAINT [None]
  - PRURITUS [None]
  - THERAPEUTIC RESPONSE UNEXPECTED WITH DRUG SUBSTITUTION [None]
  - VOMITING [None]
